FAERS Safety Report 10256469 (Version 1)
Quarter: 2014Q2

REPORT INFORMATION
  Report Type: Report from Study
  Country: FR (occurrence: FR)
  Receive Date: 20140624
  Receipt Date: 20140624
  Transmission Date: 20141212
  Serious: Yes (Hospitalization)
  Sender: FDA-Public Use
  Company Number: FR-JNJFOC-20130702503

PATIENT
  Sex: Female
  Weight: 50 kg

DRUGS (11)
  1. XARELTO [Suspect]
     Indication: ATRIAL FIBRILLATION
     Route: 048
     Dates: start: 20130327
  2. XARELTO [Suspect]
     Indication: ATRIAL FIBRILLATION
     Route: 048
     Dates: start: 20130228, end: 20130326
  3. XARELTO [Suspect]
     Indication: CEREBROVASCULAR ACCIDENT PROPHYLAXIS
     Route: 048
     Dates: start: 20130327
  4. XARELTO [Suspect]
     Indication: CEREBROVASCULAR ACCIDENT PROPHYLAXIS
     Route: 048
     Dates: start: 20130228, end: 20130326
  5. CRESTOR [Concomitant]
     Route: 065
     Dates: start: 201303
  6. KARDEGIC [Concomitant]
     Route: 065
     Dates: start: 201303
  7. INEXIUM [Concomitant]
     Route: 065
     Dates: start: 201303
  8. COUMADINE [Concomitant]
     Route: 065
     Dates: start: 1993, end: 20130228
  9. ALDACTAZINE [Concomitant]
     Route: 065
     Dates: end: 201303
  10. ATENOLOL [Concomitant]
     Route: 065
  11. TRIATEC [Concomitant]
     Route: 065
     Dates: start: 201303

REACTIONS (1)
  - Peripheral ischaemia [Recovering/Resolving]
